FAERS Safety Report 8547896-X (Version None)
Quarter: 2012Q3

REPORT INFORMATION
  Report Type: 
  Country: None (occurrence: None)
  Receive Date: 20120728
  Receipt Date: 20120613
  Transmission Date: 20120928
  Serious: Yes (Death)
  Sender: FDA-Public Use
  Company Number: JP-MSD-1206USA02882

PATIENT

DRUGS (1)
  1. INDOCIN [Suspect]
     Route: 042

REACTIONS (2)
  - HEPATIC RUPTURE [None]
  - SHOCK HAEMORRHAGIC [None]
